FAERS Safety Report 8032107-4 (Version None)
Quarter: 2012Q1

REPORT INFORMATION
  Report Type: 
  Country: None (occurrence: None)
  Receive Date: 20120109
  Receipt Date: 20120103
  Transmission Date: 20120608
  Serious: Yes (Hospitalization)
  Sender: FDA-Public Use
  Company Number: US-RB-032961-11

PATIENT
  Sex: Female

DRUGS (6)
  1. SUBOXONE [Suspect]
     Indication: DRUG DEPENDENCE
     Dosage: 1 TABLET
     Route: 002
     Dates: start: 20110101, end: 20110101
  2. SUBUTEX [Suspect]
     Indication: DRUG DEPENDENCE
     Route: 063
  3. SUBOXONE [Suspect]
     Route: 064
  4. SUBUTEX [Suspect]
     Route: 064
  5. RITALIN [Concomitant]
     Indication: PRODUCT USED FOR UNKNOWN INDICATION
     Dosage: UNKNOWN DOSE
     Route: 063
  6. SUBOXONE [Suspect]
     Route: 063

REACTIONS (4)
  - LISTLESS [None]
  - FOETAL EXPOSURE DURING PREGNANCY [None]
  - EXPOSURE DURING BREAST FEEDING [None]
  - ACCIDENTAL EXPOSURE [None]
